FAERS Safety Report 6787811-2 (Version None)
Quarter: 2010Q2

REPORT INFORMATION
  Report Type: 
  Country: None (occurrence: None)
  Receive Date: 20100623
  Receipt Date: 20071207
  Transmission Date: 20101027
  Serious: No
  Sender: FDA-Public Use
  Company Number: US-PFIZER INC-2007064191

PATIENT
  Age: 50 Year
  Sex: Female
  Weight: 78.02 kg

DRUGS (1)
  1. AROMASIN [Suspect]
     Indication: BREAST CANCER

REACTIONS (1)
  - BLOOD ALKALINE PHOSPHATASE INCREASED [None]
